FAERS Safety Report 12673157 (Version 1)
Quarter: 2016Q3

REPORT INFORMATION
  Report Type: Spontaneous
  Country: GB (occurrence: GB)
  Receive Date: 20160822
  Receipt Date: 20160822
  Transmission Date: 20161109
  Serious: Yes (Other)
  Sender: FDA-Public Use
  Company Number: GB-TEVA-684556ACC

PATIENT
  Age: 62 Year
  Sex: Male
  Weight: 57 kg

DRUGS (6)
  1. ALFUZOSIN [Concomitant]
     Active Substance: ALFUZOSIN
     Dosage: 1 DOSAGE FORMS DAILY;
     Dates: start: 20160721
  2. FINASTERIDE. [Concomitant]
     Active Substance: FINASTERIDE
     Dosage: 1 DOSAGE FORMS DAILY;
     Dates: start: 20160721
  3. TAMSULOSIN [Suspect]
     Active Substance: TAMSULOSIN
     Dates: start: 20160317
  4. NAPROXEN. [Concomitant]
     Active Substance: NAPROXEN
     Dosage: 3 DOSAGE FORMS DAILY; AFTER FOOD
     Dates: start: 20141021
  5. OMEPRAZOLE. [Concomitant]
     Active Substance: OMEPRAZOLE
     Dosage: 1 DOSAGE FORMS DAILY;
     Dates: start: 20150701
  6. TRAMADOL. [Concomitant]
     Active Substance: TRAMADOL
     Dosage: TAKE 1 OR 2 AS REQUIRED.
     Dates: start: 20160719

REACTIONS (1)
  - Pollakiuria [Not Recovered/Not Resolved]

NARRATIVE: CASE EVENT DATE: 20160524
